FAERS Safety Report 6829348-8 (Version None)
Quarter: 2010Q2

REPORT INFORMATION
  Report Type: 
  Country: None (occurrence: None)
  Receive Date: 20100630
  Receipt Date: 20100617
  Transmission Date: 20101027
  Serious: Yes (Death, Life-Threatening, Hospitalization, Other)
  Sender: FDA-Public Use
  Company Number: AECAN201000109

PATIENT
  Age: 68 Year
  Sex: Female
  Weight: 78 kg

DRUGS (6)
  1. ALBUMINAR-25 [Suspect]
     Indication: CARDIAC FAILURE
     Dosage: 12.5 GM; TOTAL; IV, 25 GM; QD; IV
     Route: 042
     Dates: start: 20100318, end: 20100318
  2. ALBUMINAR-25 [Suspect]
     Indication: GENERALISED OEDEMA
     Dosage: 12.5 GM; TOTAL; IV, 25 GM; QD; IV
     Route: 042
     Dates: start: 20100318, end: 20100318
  3. ALBUMINAR-25 [Suspect]
     Indication: HEPATIC CIRRHOSIS
     Dosage: 12.5 GM; TOTAL; IV, 25 GM; QD; IV
     Route: 042
     Dates: start: 20100318, end: 20100318
  4. ALBUMINAR-25 [Suspect]
     Indication: CARDIAC FAILURE
     Dosage: 12.5 GM; TOTAL; IV, 25 GM; QD; IV
     Route: 042
     Dates: start: 20100319, end: 20100319
  5. ALBUMINAR-25 [Suspect]
     Indication: GENERALISED OEDEMA
     Dosage: 12.5 GM; TOTAL; IV, 25 GM; QD; IV
     Route: 042
     Dates: start: 20100319, end: 20100319
  6. ALBUMINAR-25 [Suspect]
     Indication: HEPATIC CIRRHOSIS
     Dosage: 12.5 GM; TOTAL; IV, 25 GM; QD; IV
     Route: 042
     Dates: start: 20100319, end: 20100319

REACTIONS (5)
  - ANAPHYLACTIC SHOCK [None]
  - FOAMING AT MOUTH [None]
  - HYPOXIA [None]
  - LOSS OF CONSCIOUSNESS [None]
  - PULMONARY EMBOLISM [None]
